FAERS Safety Report 9002967 (Version 5)
Quarter: 2013Q4

REPORT INFORMATION
  Report Type: Spontaneous
  Country: GB (occurrence: GB)
  Receive Date: 20130108
  Receipt Date: 20131112
  Transmission Date: 20140711
  Serious: Yes (Life-Threatening)
  Sender: FDA-Public Use
  Company Number: GB-WATSON-2012-23151

PATIENT
  Sex: Male
  Weight: 8 kg

DRUGS (3)
  1. ATRACURIUM (UNKNOWN) [Suspect]
     Indication: ENDOTRACHEAL INTUBATION
     Dosage: 0.5 MG/KG, UNKNOWN
     Route: 042
     Dates: start: 20120613, end: 20120613
  2. SUBLIMAZE [Suspect]
     Indication: ANAESTHESIA
     Dosage: 1 ?G/KG, UNKNOWN, DOSAGE FORM: SOLUTION
     Route: 042
     Dates: start: 20120613, end: 20120613
  3. SPEKTRAMOX [Suspect]
     Indication: PRODUCT USED FOR UNKNOWN INDICATION
     Dosage: 30 MG/KG, UNKNOWN
     Route: 042

REACTIONS (1)
  - Anaphylactic reaction [Not Recovered/Not Resolved]
